FAERS Safety Report 13960372 (Version 1)
Quarter: 2017Q3

REPORT INFORMATION
  Report Type: Spontaneous
  Country: US (occurrence: US)
  Receive Date: 20170912
  Receipt Date: 20170912
  Transmission Date: 20171128
  Serious: No
  Sender: FDA-Public Use
  Company Number: US-ALLERGAN-1712505US

PATIENT
  Age: 45 Year
  Sex: Male

DRUGS (1)
  1. LEXAPRO [Suspect]
     Active Substance: ESCITALOPRAM OXALATE
     Indication: ANXIETY
     Dosage: UNK
     Dates: start: 201204, end: 20160114

REACTIONS (2)
  - Drug ineffective [Unknown]
  - Anxiety [Unknown]

NARRATIVE: CASE EVENT DATE: 201601
